FAERS Safety Report 8975829 (Version 1)
Quarter: 2012Q4

REPORT INFORMATION
  Report Type: 
  Country: JP (occurrence: JP)
  Receive Date: 20121219
  Receipt Date: 20121219
  Transmission Date: 20130627
  Serious: Yes (Other)
  Sender: FDA-Public Use
  Company Number: CHNY2012JP000744

PATIENT
  Age: 94 Year
  Sex: Female

DRUGS (2)
  1. PURSENNID [Suspect]
     Dosage: Unk, Unk
     Route: 048
  2. DRUG THERAPY NOS [Concomitant]
     Indication: DUODENAL ULCER
     Dosage: Unk, Unk

REACTIONS (3)
  - Breast cancer [Unknown]
  - Malaise [Unknown]
  - Abdominal pain [Unknown]
